FAERS Safety Report 10104478 (Version 2)
Quarter: 2014Q2

REPORT INFORMATION
  Report Type: Other
  Country: US (occurrence: US)
  Receive Date: 20140424
  Receipt Date: 20140625
  Transmission Date: 20141212
  Serious: Yes (Hospitalization, Other)
  Sender: FDA-Public Use
  Company Number: US-GSKPPD-2014GSK001347

PATIENT
  Age: 61 Year
  Sex: Female

DRUGS (6)
  1. AVANDIA [Suspect]
     Indication: DIABETES MELLITUS
     Route: 048
  2. ENTERIC COATED ASPIRIN [Concomitant]
     Route: 048
  3. K-DUR [Concomitant]
     Route: 048
  4. LASIX [Concomitant]
     Route: 048
  5. LISINOPRIL [Concomitant]
     Route: 048
  6. NITROGLYCERIN [Concomitant]
     Route: 060

REACTIONS (2)
  - Myocardial infarction [None]
  - Cardiac failure congestive [Recovered/Resolved]
